FAERS Safety Report 18192296 (Version 1)
Quarter: 2020Q3

REPORT INFORMATION
  Report Type: Spontaneous
  Country: CA (occurrence: CA)
  Receive Date: 20200825
  Receipt Date: 20200825
  Transmission Date: 20201103
  Serious: Yes (Other)
  Sender: FDA-Public Use
  Company Number: CA-MYLANLABS-2020M1072786

PATIENT
  Age: 40 Year
  Sex: Male
  Weight: 123 kg

DRUGS (4)
  1. ACH ESCITALOPRAM [Concomitant]
     Dosage: UNK
  2. AZELASTINE/FLUTICASONE [Suspect]
     Active Substance: AZELASTINE HYDROCHLORIDE\FLUTICASONE PROPIONATE
     Dosage: UNK
  3. APO?TOPIRAMATE [Concomitant]
     Active Substance: TOPIRAMATE
     Dosage: UNK
  4. DOM RAMIPRIL [Concomitant]
     Dosage: UNK

REACTIONS (5)
  - Nasal congestion [Recovered/Resolved]
  - Cough [Recovered/Resolved]
  - Upper respiratory tract infection [Recovered/Resolved]
  - Rhinitis [Recovered/Resolved]
  - Oropharyngeal pain [Recovered/Resolved]
